FAERS Safety Report 8777153 (Version 2)
Quarter: 2012Q4

REPORT INFORMATION
  Report Type: 
  Country: US (occurrence: US)
  Receive Date: 20120911
  Receipt Date: 20121018
  Transmission Date: 20130627
  Serious: Yes (Hospitalization)
  Sender: FDA-Public Use
  Company Number: US-AMGEN-USASP2012056526

PATIENT
  Age: 43 Year
  Sex: Male

DRUGS (1)
  1. ENBREL [Suspect]
     Indication: PSORIATIC ARTHROPATHY
     Dosage: 50 mg, 2 times/wk
     Route: 058
     Dates: start: 20110415

REACTIONS (5)
  - Toxicity to various agents [Recovered/Resolved]
  - Skin plaque [Not Recovered/Not Resolved]
  - Increased tendency to bruise [Recovered/Resolved]
  - Pallor [Recovered/Resolved]
  - Arthralgia [Not Recovered/Not Resolved]
